FAERS Safety Report 13608485 (Version 2)
Quarter: 2017Q2

REPORT INFORMATION
  Report Type: Spontaneous
  Country: RU (occurrence: RU)
  Receive Date: 20170602
  Receipt Date: 20170605
  Transmission Date: 20170830
  Serious: Yes (Other)
  Sender: FDA-Public Use
  Company Number: RU-BAYER-2017-099581

PATIENT
  Age: 31 Year
  Sex: Female

DRUGS (1)
  1. YARINA [Suspect]
     Active Substance: DROSPIRENONE\ETHINYL ESTRADIOL
     Dosage: UNK
     Route: 048

REACTIONS (8)
  - Pregnancy on oral contraceptive [None]
  - Inappropriate schedule of drug administration [None]
  - Subchorionic haematoma [Not Recovered/Not Resolved]
  - Nausea [None]
  - Abnormal withdrawal bleeding [None]
  - Haemorrhage in pregnancy [Not Recovered/Not Resolved]
  - Dysgeusia [None]
  - Headache [None]

NARRATIVE: CASE EVENT DATE: 20170505
